FAERS Safety Report 7734546-5 (Version None)
Quarter: 2011Q3

REPORT INFORMATION
  Report Type: 
  Country: None (occurrence: None)
  Receive Date: 20110907
  Receipt Date: 20110831
  Transmission Date: 20111222
  Serious: Yes (Hospitalization, Disabling)
  Sender: FDA-Public Use
  Company Number: GB-GLAXOSMITHKLINE-B0740896A

PATIENT
  Sex: Female

DRUGS (12)
  1. PAROXETINE HCL [Suspect]
     Indication: PRODUCT USED FOR UNKNOWN INDICATION
     Dosage: 20MG THREE TIMES PER DAY
     Route: 048
     Dates: start: 19990101, end: 20110501
  2. MIRTAZAPINE [Suspect]
     Indication: PRODUCT USED FOR UNKNOWN INDICATION
     Route: 065
  3. OMEPRAZOLE [Suspect]
  4. PROCYCLIDINE HYDROCHLORIDE 2MG TAB [Suspect]
     Indication: PRODUCT USED FOR UNKNOWN INDICATION
     Route: 065
  5. QUETIAPINE [Suspect]
     Indication: PRODUCT USED FOR UNKNOWN INDICATION
     Route: 065
  6. CODEINE SULFATE [Suspect]
  7. DOMPERIDONE [Suspect]
  8. LORAZEPAM [Suspect]
     Indication: PRODUCT USED FOR UNKNOWN INDICATION
     Route: 065
  9. TRAMADOL HYDROCHLORIDE [Suspect]
     Indication: NECK PAIN
     Route: 065
  10. DIAZEPAM [Suspect]
  11. CLONAZEPAM [Suspect]
     Indication: PRODUCT USED FOR UNKNOWN INDICATION
     Route: 065
  12. AMITRIPTYLINE HCL [Suspect]

REACTIONS (68)
  - SCHIZOPHRENIA [None]
  - SKIN DISCOLOURATION [None]
  - DEPRESSION [None]
  - MOOD SWINGS [None]
  - MUSCLE DISORDER [None]
  - GASTRIC PH DECREASED [None]
  - HYPOAESTHESIA [None]
  - EMOTIONAL DISORDER [None]
  - CONTUSION [None]
  - MATERNAL EXPOSURE DURING PREGNANCY [None]
  - SUICIDAL IDEATION [None]
  - NIGHTMARE [None]
  - SLEEP DISORDER [None]
  - FEELING JITTERY [None]
  - PRURITUS [None]
  - AGITATION [None]
  - SENSORY LOSS [None]
  - GAIT DISTURBANCE [None]
  - MYDRIASIS [None]
  - TINNITUS [None]
  - APHASIA [None]
  - NEUROLEPTIC MALIGNANT SYNDROME [None]
  - CYANOSIS [None]
  - H1N1 INFLUENZA [None]
  - PARAESTHESIA [None]
  - DROOLING [None]
  - DISSOCIATION [None]
  - TOXICITY TO VARIOUS AGENTS [None]
  - VOMITING [None]
  - HYPERHIDROSIS [None]
  - ANXIETY [None]
  - SWELLING FACE [None]
  - RESTLESSNESS [None]
  - DECREASED APPETITE [None]
  - BLOOD SODIUM DECREASED [None]
  - HALLUCINATIONS, MIXED [None]
  - MALAISE [None]
  - DISTURBANCE IN ATTENTION [None]
  - TREMOR [None]
  - MENSTRUAL DISORDER [None]
  - VISION BLURRED [None]
  - MUSCLE SPASMS [None]
  - DYSPNOEA [None]
  - DRUG INTERACTION [None]
  - URINARY RETENTION [None]
  - CONVULSION [None]
  - PREMATURE LABOUR [None]
  - DYSKINESIA [None]
  - HEADACHE [None]
  - DEREALISATION [None]
  - ARTHRALGIA [None]
  - HEART RATE INCREASED [None]
  - PSYCHOTIC DISORDER [None]
  - DELIRIUM [None]
  - PYREXIA [None]
  - ASTHENIA [None]
  - SEROTONIN SYNDROME [None]
  - MANIA [None]
  - FEELING OF DESPAIR [None]
  - INCONTINENCE [None]
  - PAROSMIA [None]
  - DIZZINESS [None]
  - DISORIENTATION [None]
  - BALANCE DISORDER [None]
  - COGWHEEL RIGIDITY [None]
  - EYE PAIN [None]
  - DIARRHOEA [None]
  - VISUAL IMPAIRMENT [None]
